FAERS Safety Report 5410277-1 (Version None)
Quarter: 2007Q3

REPORT INFORMATION
  Report Type: 
  Country: None (occurrence: None)
  Receive Date: 20070808
  Receipt Date: 20070727
  Transmission Date: 20080115
  Serious: Yes (Hospitalization)
  Sender: FDA-Public Use
  Company Number: 159444USA

PATIENT
  Sex: Male

DRUGS (1)
  1. BETAMETHASONE VALERATE [Suspect]
     Indication: DANDRUFF
     Dosage: TOPICAL
     Route: 061
     Dates: start: 20061001, end: 20070701

REACTIONS (2)
  - OEDEMA PERIPHERAL [None]
  - PARKINSON'S DISEASE [None]
